FAERS Safety Report 9425870 (Version 1)
Quarter: 2013Q3

REPORT INFORMATION
  Report Type: Spontaneous
  Country: AT (occurrence: AT)
  Receive Date: 20130729
  Receipt Date: 20130729
  Transmission Date: 20140515
  Serious: Yes (Other)
  Sender: FDA-Public Use
  Company Number: AT-B.I. PHARMACEUTICALS,INC./RIDGEFIELD-2013-AP-00592AP

PATIENT
  Age: 50 Year
  Sex: Male
  Weight: 98 kg

DRUGS (1)
  1. MICARDIS PLUS [Suspect]
     Indication: HYPERTENSION
     Dosage: STRENGTH: 20/6,25; DAILY DOSE: 20/6,25
     Route: 048
     Dates: start: 20091102, end: 20091111

REACTIONS (2)
  - Abdominal pain upper [Recovered/Resolved]
  - Back pain [Recovered/Resolved]
